FAERS Safety Report 14272353 (Version 1)
Quarter: 2017Q4

REPORT INFORMATION
  Report Type: Spontaneous
  Country: JP (occurrence: JP)
  Receive Date: 20171212
  Receipt Date: 20171212
  Transmission Date: 20180321
  Serious: Yes (Other)
  Sender: FDA-Public Use
  Company Number: PHJP2017JP035240

PATIENT
  Age: 2 Year
  Sex: Male

DRUGS (1)
  1. CARBAMAZEPINE. [Suspect]
     Active Substance: CARBAMAZEPINE
     Indication: SEIZURE
     Dosage: 5 MG/KG, UNK
     Route: 048

REACTIONS (3)
  - Cardiac arrest [Recovered/Resolved]
  - Atrioventricular block second degree [Unknown]
  - Seizure [Unknown]
